FAERS Safety Report 8483645-1 (Version None)
Quarter: 2012Q3

REPORT INFORMATION
  Report Type: 
  Country: None (occurrence: None)
  Receive Date: 20120702
  Receipt Date: 20120626
  Transmission Date: 20120928
  Serious: Yes (Hospitalization)
  Sender: FDA-Public Use
  Company Number: US-BAYER-2012-064278

PATIENT
  Age: 72 Year
  Sex: Female

DRUGS (5)
  1. ALEVE (CAPLET) [Suspect]
     Indication: HEADACHE
     Dosage: UNK
     Route: 048
     Dates: start: 20120620
  2. TYLENOL W/ CODEINE [Concomitant]
  3. ANTI-DIABETICS [Concomitant]
  4. PREDNISONE TAB [Concomitant]
  5. LIPITOR [Concomitant]

REACTIONS (4)
  - HOT FLUSH [None]
  - MALAISE [None]
  - INFLUENZA LIKE ILLNESS [None]
  - VOMITING [None]
